FAERS Safety Report 10187743 (Version 1)
Quarter: 2014Q2

REPORT INFORMATION
  Report Type: Spontaneous
  Country: US (occurrence: None)
  Receive Date: 20140521
  Receipt Date: 20140521
  Transmission Date: 20141212
  Serious: No
  Sender: FDA-Public Use
  Company Number: None

PATIENT
  Age: 63 Year
  Sex: Male

DRUGS (1)
  1. CLINDAMYCIN [Suspect]
     Dosage: TOOK A FEW DAYS, 300MG, BID, PO?
     Route: 048
     Dates: start: 20140110

REACTIONS (2)
  - Abdominal discomfort [None]
  - Diarrhoea [None]
